FAERS Safety Report 9208112 (Version 1)
Quarter: 2013Q2

REPORT INFORMATION
  Report Type: Spontaneous
  Country: US (occurrence: US)
  Receive Date: 20130403
  Receipt Date: 20130403
  Transmission Date: 20140414
  Serious: No
  Sender: FDA-Public Use
  Company Number: US-009507513-1304USA001354

PATIENT
  Age: 64 Year
  Sex: Female

DRUGS (2)
  1. FARESTON [Suspect]
     Indication: BREAST CANCER METASTATIC
     Dosage: 60 MG, QD
     Route: 048
     Dates: start: 20120218
  2. OXYCONTIN [Concomitant]

REACTIONS (7)
  - Asthenia [Unknown]
  - Hyperhidrosis [Unknown]
  - Headache [Unknown]
  - Tumour marker increased [Unknown]
  - Alopecia [Unknown]
  - Onychoclasis [Unknown]
  - Dry skin [Unknown]
